FAERS Safety Report 8856946 (Version 1)
Quarter: 2012Q4

REPORT INFORMATION
  Report Type: Spontaneous
  Country: US (occurrence: None)
  Receive Date: 20121015
  Receipt Date: 20121015
  Transmission Date: 20130627
  Serious: Yes (Hospitalization)
  Sender: FDA-Public Use
  Company Number: 2012031747

PATIENT
  Sex: Female
  Weight: 42.18 kg

DRUGS (27)
  1. HIZENTRA [Suspect]
     Indication: IMMUNODEFICIENCY COMMON VARIABLE
     Dosage: (5 g 2x/week, 1 GM 5ML vial 1-2 sites over 30-120 minutes Subcutaneous)
     Route: 058
  2. HIZENTRA [Suspect]
     Indication: THROMBOCYTOPENIA
     Dosage: (5 g 2x/week, 1 GM 5ML vial 1-2 sites over 30-120 minutes Subcutaneous)
     Route: 058
  3. HIZENTRA [Suspect]
     Dosage: (5 g 2x/week, 1 GM 5ML vial 1-2 sites over 30-120 minutes Subcutaneous)
     Route: 058
  4. HIZENTRA [Suspect]
     Indication: IMMUNODEFICIENCY COMMON VARIABLE
     Dosage: (5 g 2x/week, 4 GM 20 ML vial 1-2 sites over 30-120 minutes Subcutaneous)
     Route: 058
  5. HIZENTRA [Suspect]
     Indication: THROMBOCYTOPENIA
     Dosage: (5 g 2x/week, 4 GM 20 ML vial 1-2 sites over 30-120 minutes Subcutaneous)
     Route: 058
  6. HIZENTRA [Suspect]
     Dosage: (5 g 2x/week, 4 GM 20 ML vial 1-2 sites over 30-120 minutes Subcutaneous)
     Route: 058
  7. HIZENTRA [Suspect]
     Indication: IMMUNODEFICIENCY COMMON VARIABLE
     Dosage: (5 g 2x/week, in 1-2 sites over 2 hours Subcutaneous)
     Route: 058
  8. HIZENTRA [Suspect]
     Indication: THROMBOCYTOPENIA
     Dosage: (5 g 2x/week, in 1-2 sites over 2 hours Subcutaneous)
     Route: 058
  9. HIZENTRA [Suspect]
     Dosage: (5 g 2x/week, in 1-2 sites over 2 hours Subcutaneous)
     Route: 058
  10. HIZENTRA [Suspect]
     Indication: IMMUNODEFICIENCY COMMON VARIABLE
     Dosage: (5 g 2x/week, in 1-2 sites over 2 hours Subcutaneous)
     Route: 058
  11. HIZENTRA [Suspect]
     Indication: THROMBOCYTOPENIA
     Dosage: (5 g 2x/week, in 1-2 sites over 2 hours Subcutaneous)
     Route: 058
  12. HIZENTRA [Suspect]
     Dosage: (5 g 2x/week, in 1-2 sites over 2 hours Subcutaneous)
     Route: 058
  13. PNEUMOVAX [Suspect]
  14. VITAMIN D (ERGOCALCIFEROL) [Concomitant]
  15. MULTIVITAMIN (MULTIVITAMIN) [Concomitant]
  16. ACIDOPHILUS PROBIOTIC (LACTOBACILLUS ACIDOPHILUS) [Concomitant]
  17. ALBUTEROL (SALBUTAMOL) [Concomitant]
  18. FISH OIL (FISH OIL) [Concomitant]
  19. DIPHENHYDRAMINE (DIPHENHYDRAMINE) [Concomitant]
  20. LIDOCAINE/PRILOCAINE (EMLA) [Concomitant]
  21. EPI-PEN (EPINEPHRINE) [Concomitant]
  22. AMICAR (AMINOCAPROIC ACID) [Concomitant]
  23. CIPRO (CIPROFLOXACIN) [Concomitant]
  24. BUDESONIDE (BUDESONIDE) [Concomitant]
  25. SALINE SOLUTION (SODIUM CHLORIDE) [Concomitant]
  26. FLUCONAZOLE (FLUCONAZOLE) [Concomitant]
  27. XYZAL (LEVOCETIRIZINE DIHYDROCHLORIDE) [Concomitant]

REACTIONS (5)
  - Injection site induration [None]
  - Injection site pain [None]
  - Injection site scar [None]
  - Injection site reaction [None]
  - Cellulitis [None]
